FAERS Safety Report 5322787-6 (Version None)
Quarter: 2007Q2

REPORT INFORMATION
  Report Type: 
  Country: None (occurrence: None)
  Receive Date: 20070511
  Receipt Date: 20070509
  Transmission Date: 20071010
  Serious: Yes (Hospitalization)
  Sender: FDA-Public Use
  Company Number: AU-BOEHRINGER INGELHEIM PHARMACEUTICALS, INC.-2007-BP-06320AU

PATIENT
  Sex: Male

DRUGS (5)
  1. ASASANTIN SR [Suspect]
     Dosage: 400/50 MG/MG
     Dates: end: 20061117
  2. MOBIC [Suspect]
     Dates: start: 20050101, end: 20061117
  3. METOPROLOL TARTRATE [Concomitant]
  4. ALLOPURINOL [Concomitant]
  5. RABEPRAZOLE SODIUM [Concomitant]

REACTIONS (2)
  - CHEST PAIN [None]
  - GASTROINTESTINAL HAEMORRHAGE [None]
